FAERS Safety Report 22533812 (Version 2)
Quarter: 2023Q2

REPORT INFORMATION
  Report Type: Other
  Country: US (occurrence: US)
  Receive Date: 20230608
  Receipt Date: 20230623
  Transmission Date: 20230721
  Serious: Yes (Other)
  Sender: FDA-Public Use
  Company Number: US-ALVOGEN-2023091624

PATIENT
  Age: 54 Year
  Sex: Male

DRUGS (18)
  1. FLUOXETINE [Suspect]
     Active Substance: FLUOXETINE HYDROCHLORIDE
     Indication: Depression
     Dosage: FOR ONE WEEK?STRENGTH: 30 MG
     Route: 048
     Dates: start: 2021, end: 2021
  2. TRAZODONE [Suspect]
     Active Substance: TRAZODONE HYDROCHLORIDE
     Indication: Sleep disorder
     Dosage: 100-200 MG ORALLY
     Route: 048
     Dates: end: 2021
  3. FLUOXETINE [Suspect]
     Active Substance: FLUOXETINE HYDROCHLORIDE
     Indication: Depression
     Dosage: TAPERED OFF MEDICATION; DECREASED BY 10 MG PER ?WEEK; TAPER SCHEDULE: FOR ONE WEEK
     Route: 048
     Dates: end: 2021
  4. FLUOXETINE [Suspect]
     Active Substance: FLUOXETINE HYDROCHLORIDE
     Indication: Depression
     Dosage: THEN TAKE 30 MG ORALLY DAILY FOR ONE WEEK
     Route: 048
     Dates: start: 2021, end: 2021
  5. FLUOXETINE [Suspect]
     Active Substance: FLUOXETINE HYDROCHLORIDE
     Indication: Depression
     Dosage: THEN TAKE 20 MG ORALLY DAILY FOR ONE WEEK
     Route: 048
     Dates: start: 2021, end: 2021
  6. FLUOXETINE [Suspect]
     Active Substance: FLUOXETINE HYDROCHLORIDE
     Indication: Depression
     Dosage: THEN TAKE 10 MG ORALLY DAILY FOR ONE WEEK, THEN DISCONTINUE
     Route: 048
     Dates: start: 2021, end: 2021
  7. ZOLPIDEM [Concomitant]
     Active Substance: ZOLPIDEM TARTRATE
     Indication: Sleep disorder
     Dosage: IN THE EVENING FOR SLEEP
  8. ATORVASTATIN [Concomitant]
     Active Substance: ATORVASTATIN
     Indication: Hyperlipidaemia
     Route: 048
  9. LAMOTRIGINE [Concomitant]
     Active Substance: LAMOTRIGINE
     Indication: Seizure
     Route: 048
  10. LAMOTRIGINE [Concomitant]
     Active Substance: LAMOTRIGINE
     Indication: Seizure
     Dosage: INCREASED TO LAMOTRIGINE 150 MG ORALLY DAILY AFTER THE OCCURRENCE OF EVENT
     Route: 048
  11. BENZONATATE [Concomitant]
     Active Substance: BENZONATATE
     Indication: Cough
     Dosage: PRN FOR 7 DAYS?DISCONTINUED
     Route: 048
     Dates: end: 2021
  12. PRAZOSIN [Concomitant]
     Active Substance: PRAZOSIN
     Indication: Anxiety
     Route: 048
  13. PRAZOSIN [Concomitant]
     Active Substance: PRAZOSIN
     Indication: Anxiety
     Dosage: DECREASED TO PRAZOSIN 2 MG ORALLY ONCE DAILY AFTER THE OCCURRENCE OF EVENT
     Route: 048
  14. NITROGLYCERIN [Concomitant]
     Active Substance: NITROGLYCERIN
     Indication: Angina pectoris
     Dosage: SUBLINGUALLY AT ONSET OF ANGINA, MAY REPEAT AFTER 5 MINUTES; MAX 3 DOSES IN 15 MINUTES
     Route: 060
  15. NICOTINE [Concomitant]
     Active Substance: NICOTINE
     Indication: Nicotine dependence
     Dosage: TOPICALLY DAILY FOR 14 DAYS
     Route: 062
  16. NICOTINE [Concomitant]
     Active Substance: NICOTINE
     Indication: Nicotine dependence
     Dosage: FOLLOWED BY 14 MG/24 HOURS PATCH FOR 14 DAYS
     Route: 062
  17. NICOTINE [Concomitant]
     Active Substance: NICOTINE
     Indication: Nicotine dependence
     Dosage: FOLLOWED BY PATCH FOR 14 DAYS
     Route: 062
  18. CLOBETASOL [Concomitant]
     Active Substance: CLOBETASOL
     Indication: Rash
     Dosage: CREAM APPLIED TOPICALLY TO AFFECTED AREA TWICE DAILY FOR 7 DAYS
     Route: 061

REACTIONS (9)
  - Hypothermia [Recovered/Resolved]
  - Serotonin syndrome [Recovering/Resolving]
  - Drug interaction [Unknown]
  - Night sweats [Recovered/Resolved]
  - Somnolence [Recovered/Resolved]
  - Poor quality sleep [Recovered/Resolved]
  - Tremor [Recovered/Resolved]
  - Confusional state [Recovered/Resolved]
  - Off label use [Unknown]
